FAERS Safety Report 9783223 (Version 1)
Quarter: 2013Q4

REPORT INFORMATION
  Report Type: Spontaneous
  Country: TR (occurrence: TR)
  Receive Date: 20131226
  Receipt Date: 20131226
  Transmission Date: 20140711
  Serious: Yes (Other)
  Sender: FDA-Public Use
  Company Number: PHHY2013TR148152

PATIENT
  Age: 8 Year
  Sex: Male

DRUGS (4)
  1. ATOMOXETINE [Suspect]
     Indication: ATTENTION DEFICIT/HYPERACTIVITY DISORDER
     Dosage: 10 MG, PER DAY
  2. ATOMOXETINE [Suspect]
     Dosage: 18 MG, PER DAY
  3. ATOMOXETINE [Suspect]
     Dosage: 40 MG, PER DAY
  4. BUSPIRONE [Concomitant]
     Dosage: 5 MG, UNK

REACTIONS (4)
  - Discomfort [Unknown]
  - Pain in jaw [Unknown]
  - Bruxism [Recovered/Resolved]
  - Decreased appetite [Unknown]
